FAERS Safety Report 23237206 (Version 1)
Quarter: 2023Q4

REPORT INFORMATION
  Report Type: Spontaneous
  Country: CN (occurrence: CN)
  Receive Date: 20231128
  Receipt Date: 20231128
  Transmission Date: 20240110
  Serious: Yes (Other)
  Sender: FDA-Public Use
  Company Number: CN-ORGANON-O2311CHN002722

PATIENT
  Age: 31 Year
  Sex: Female
  Weight: 66 kg

DRUGS (10)
  1. FOLLITROPIN BETA [Suspect]
     Active Substance: FOLLITROPIN BETA
     Indication: Superovulation
     Dosage: 150 IU, QD, SUBCUTANEOUS INJECTION
     Route: 058
     Dates: start: 20231030, end: 20231105
  2. FOLLITROPIN BETA [Suspect]
     Active Substance: FOLLITROPIN BETA
  3. MENOTROPINS [Suspect]
     Active Substance: MENOTROPINS
     Indication: Superovulation
     Dosage: 75 IU, QD, INTRAMUSCULAR INJECTION
     Route: 030
     Dates: start: 20231030, end: 20231102
  4. MENOTROPINS [Suspect]
     Active Substance: MENOTROPINS
     Dosage: 75 IU, QD, INTRAMUSCULAR INJECTION|
     Route: 030
     Dates: start: 20231108, end: 20231108
  5. GONAL-F [Suspect]
     Active Substance: FOLLITROPIN
     Indication: Superovulation
     Dosage: 150 IU, QD, SUBCUTANEOUS INJECTION|
     Route: 058
     Dates: start: 20231106, end: 20231106
  6. LUVERIS [Suspect]
     Active Substance: LUTROPIN ALFA
     Indication: Superovulation
     Dosage: 75 IU, QD, SUBCUTANEOUS INJECTION
     Route: 058
     Dates: start: 20231106, end: 20231107
  7. OVIDREL [Suspect]
     Active Substance: CHORIOGONADOTROPIN ALFA
     Indication: Superovulation
     Dosage: 250UG, QD, SUBCUTANEOUS INJECTION
     Route: 058
     Dates: start: 20231108, end: 20231108
  8. SODIUM CHLORIDE [Concomitant]
     Active Substance: SODIUM CHLORIDE
     Indication: Vehicle solution use
     Dosage: 2ML, QD,INTRAMUSCULAR INJECTION
     Route: 030
     Dates: start: 20231030, end: 20231102
  9. SODIUM CHLORIDE [Concomitant]
     Active Substance: SODIUM CHLORIDE
     Dosage: 2ML, QD,INTRAMUSCULAR INJECTION
     Route: 030
     Dates: start: 20231108, end: 20231108
  10. STERILE WATER FOR INJECTION [Concomitant]
     Active Substance: WATER
     Indication: Vehicle solution use
     Dosage: 1ML, QD,SUBCUTANEOUS INJECTION
     Route: 058
     Dates: start: 20231106, end: 20231106

REACTIONS (7)
  - Ovarian hyperstimulation syndrome [Recovering/Resolving]
  - Abdominal distension [Recovering/Resolving]
  - Abdominal pain [Recovering/Resolving]
  - Cold sweat [Recovering/Resolving]
  - Palpitations [Recovering/Resolving]
  - Nausea [Recovering/Resolving]
  - Asthenia [Recovering/Resolving]

NARRATIVE: CASE EVENT DATE: 20231115
